FAERS Safety Report 15080503 (Version 1)
Quarter: 2018Q2

REPORT INFORMATION
  Report Type: Spontaneous
  Country: FR (occurrence: FR)
  Receive Date: 20180628
  Receipt Date: 20180628
  Transmission Date: 20180711
  Serious: Yes (Other)
  Sender: FDA-Public Use
  Company Number: FR-009507513-1806FRA010745

PATIENT
  Age: 30 Year
  Sex: Female
  Weight: 76 kg

DRUGS (2)
  1. IRON (UNSPECIFIED) [Concomitant]
     Active Substance: IRON
     Dosage: 1 TABLET PER DAY
     Route: 048
  2. CELESTENE 4MG/1ML [Suspect]
     Active Substance: BETAMETHASONE
     Indication: NEONATAL RESPIRATORY DISTRESS SYNDROME PROPHYLAXIS
     Dosage: 12 MG, UNK
     Route: 030
     Dates: start: 20180617

REACTIONS (1)
  - Caesarean section [Unknown]

NARRATIVE: CASE EVENT DATE: 20180618
